FAERS Safety Report 8898357 (Version 1)
Quarter: 2012Q4

REPORT INFORMATION
  Report Type: 
  Country: US (occurrence: US)
  Receive Date: 20121109
  Receipt Date: 20121109
  Transmission Date: 20130627
  Serious: No
  Sender: FDA-Public Use
  Company Number: US-009507513-1211USA003324

PATIENT
  Age: 69 None
  Sex: Male

DRUGS (2)
  1. PEGINTRON [Suspect]
     Indication: HEPATITIS C
     Dosage: UNK
     Dates: start: 20121030
  2. RIBAVIRIN [Suspect]
     Indication: HEPATITIS C
     Dosage: UNK
     Dates: start: 20121030

REACTIONS (6)
  - Oedema mouth [Unknown]
  - Mouth ulceration [Unknown]
  - Back pain [Recovering/Resolving]
  - Dysuria [Not Recovered/Not Resolved]
  - Pruritus [Unknown]
  - Pyrexia [Unknown]
